FAERS Safety Report 17976601 (Version 9)
Quarter: 2022Q2

REPORT INFORMATION
  Report Type: Report from Study
  Country: NL (occurrence: NL)
  Receive Date: 20200703
  Receipt Date: 20220406
  Transmission Date: 20220721
  Serious: Yes (Hospitalization, Other)
  Sender: FDA-Public Use
  Company Number: NL-ABBVIE-20K-114-3266512-00

PATIENT
  Sex: Male

DRUGS (5)
  1. CARBIDOPA\LEVODOPA [Suspect]
     Active Substance: CARBIDOPA\LEVODOPA
     Indication: Parkinson^s disease
     Dosage: MD: 9.0 ML, CD: 3.8 ML/H, ED: 3.0 ML. 16 HOURS ADMINISTRATION.?20 MG/ML 5 MG/ML
     Route: 050
     Dates: start: 20141210
  2. CARBIDOPA\LEVODOPA [Suspect]
     Active Substance: CARBIDOPA\LEVODOPA
     Dosage: MD: 7.0 ML, CD: 3.8 ML/H, ED: 3.0 ML?GOES TO 24 HOURS
     Route: 050
  3. CARBIDOPA\LEVODOPA [Suspect]
     Active Substance: CARBIDOPA\LEVODOPA
     Dosage: MD: 7.0 ML, CD: 3.8 ML/H, ED: 3.0 ML, END: 3.0 ML, CND: 2.0 ML/H
     Route: 050
  4. POLYETHYLENE GLYCOLS [Concomitant]
     Active Substance: POLYETHYLENE GLYCOLS
     Indication: Abnormal faeces
  5. COVID-19 VACCINE [Concomitant]
     Indication: COVID-19 immunisation
     Dosage: HAD GOT THE FIRST VACCINATION.
     Route: 030

REACTIONS (18)
  - Osteoarthritis [Recovered/Resolved]
  - Memory impairment [Not Recovered/Not Resolved]
  - Tension [Not Recovered/Not Resolved]
  - Mobility decreased [Recovered/Resolved]
  - Nocturia [Unknown]
  - Mobility decreased [Not Recovered/Not Resolved]
  - Gait disturbance [Not Recovered/Not Resolved]
  - Weight decreased [Recovered/Resolved]
  - Dyskinesia [Recovered/Resolved]
  - Sleep disorder [Recovered/Resolved]
  - Muscle rigidity [Not Recovered/Not Resolved]
  - On and off phenomenon [Not Recovered/Not Resolved]
  - Parkinson^s disease [Not Recovered/Not Resolved]
  - Dyskinesia [Not Recovered/Not Resolved]
  - Stoma site discharge [Unknown]
  - Therapeutic product effect incomplete [Unknown]
  - Confusional state [Unknown]
  - Device issue [Unknown]

NARRATIVE: CASE EVENT DATE: 20200101
